FAERS Safety Report 12356349 (Version 1)
Quarter: 2016Q2

REPORT INFORMATION
  Report Type: Spontaneous
  Country: DE (occurrence: DE)
  Receive Date: 20160511
  Receipt Date: 20160511
  Transmission Date: 20160815
  Serious: Yes (Other)
  Sender: FDA-Public Use
  Company Number: DE-ASTRAZENECA-2016SE48792

PATIENT
  Sex: Male

DRUGS (1)
  1. FORXIGA [Suspect]
     Active Substance: DAPAGLIFLOZIN
     Route: 048

REACTIONS (5)
  - Muscular weakness [Unknown]
  - Muscle spasms [Unknown]
  - Myalgia [Unknown]
  - Lactic acidosis [Unknown]
  - Ketoacidosis [Unknown]
